FAERS Safety Report 17082301 (Version 1)
Quarter: 2019Q4

REPORT INFORMATION
  Report Type: Spontaneous
  Country: GR (occurrence: GR)
  Receive Date: 20191127
  Receipt Date: 20191127
  Transmission Date: 20200122
  Serious: Yes (Other)
  Sender: FDA-Public Use
  Company Number: NVSC2019GR039320

PATIENT
  Age: 42 Year
  Sex: Male

DRUGS (1)
  1. BUDESONIDE. [Suspect]
     Active Substance: BUDESONIDE
     Indication: CROHN^S DISEASE
     Route: 065

REACTIONS (3)
  - Arthralgia [Unknown]
  - Crohn^s disease [Recovering/Resolving]
  - Respiratory tract infection [Unknown]

NARRATIVE: CASE EVENT DATE: 201603
